FAERS Safety Report 8369918-1 (Version None)
Quarter: 2012Q2

REPORT INFORMATION
  Report Type: 
  Country: None (occurrence: None)
  Receive Date: 20120518
  Receipt Date: 20120508
  Transmission Date: 20120825
  Serious: Yes (Hospitalization, Other)
  Sender: FDA-Public Use
  Company Number: US-SANOFI-AVENTIS-2012SA021794

PATIENT
  Age: 57 Year
  Sex: Female

DRUGS (14)
  1. LOVENOX [Suspect]
     Indication: PULMONARY EMBOLISM
     Dates: start: 20061101, end: 20061101
  2. LOVENOX [Suspect]
     Dates: start: 20120507
  3. LOVENOX [Suspect]
     Dates: start: 20120507
  4. LOVENOX [Suspect]
     Dates: start: 20061101, end: 20061101
  5. LOVENOX [Suspect]
     Dates: start: 20110701, end: 20110701
  6. PREDNISONE [Concomitant]
  7. LOVENOX [Suspect]
     Dates: start: 20110701, end: 20110701
  8. LOVENOX [Suspect]
     Dates: start: 20110712, end: 20120228
  9. LOVENOX [Suspect]
     Dates: start: 20061101, end: 20061201
  10. LOVENOX [Suspect]
     Dates: start: 20061201, end: 20110701
  11. ASPIRIN [Concomitant]
  12. LOVENOX [Suspect]
     Dates: start: 20061101, end: 20061201
  13. LOVENOX [Suspect]
     Dates: start: 20061201, end: 20110701
  14. LOVENOX [Suspect]
     Dates: start: 20110712, end: 20120228

REACTIONS (36)
  - PLATELET COUNT DECREASED [None]
  - PARAESTHESIA [None]
  - MEMORY IMPAIRMENT [None]
  - CONDITION AGGRAVATED [None]
  - DIZZINESS [None]
  - ANAEMIA [None]
  - OEDEMA PERIPHERAL [None]
  - HYPOAESTHESIA [None]
  - NERVOUS SYSTEM DISORDER [None]
  - HEADACHE [None]
  - HAEMATOCRIT DECREASED [None]
  - CIRCULATORY COLLAPSE [None]
  - THROMBOCYTOPENIA [None]
  - BODY TEMPERATURE INCREASED [None]
  - BLOOD CREATININE INCREASED [None]
  - BLOOD DISORDER [None]
  - HAEMORRHAGE [None]
  - HAEMATOMA [None]
  - ENDOCARDITIS BACTERIAL [None]
  - CONFUSIONAL STATE [None]
  - METABOLIC DISORDER [None]
  - SYSTEMIC LUPUS ERYTHEMATOSUS [None]
  - DEEP VEIN THROMBOSIS [None]
  - HAEMOGLOBIN DECREASED [None]
  - HYPERTENSION [None]
  - UNEVALUABLE EVENT [None]
  - RENAL FAILURE [None]
  - HYPOTENSION [None]
  - WEIGHT DECREASED [None]
  - DIARRHOEA [None]
  - NAUSEA [None]
  - DYSPNOEA [None]
  - MUSCULAR WEAKNESS [None]
  - LOSS OF CONSCIOUSNESS [None]
  - CONTUSION [None]
  - DRUG ADMINISTERED AT INAPPROPRIATE SITE [None]
